FAERS Safety Report 9203751 (Version 3)
Quarter: 2013Q2

REPORT INFORMATION
  Report Type: Spontaneous
  Country: DE (occurrence: DE)
  Receive Date: 20130402
  Receipt Date: 20130603
  Transmission Date: 20140414
  Serious: Yes (Hospitalization)
  Sender: FDA-Public Use
  Company Number: DE-BRISTOL-MYERS SQUIBB COMPANY-17022120

PATIENT
  Age: 76 Year
  Sex: Male
  Weight: 68 kg

DRUGS (1)
  1. LITALIR CAPS [Suspect]
     Indication: CHRONIC MYELOID LEUKAEMIA
     Dates: start: 2009

REACTIONS (1)
  - Interstitial lung disease [Recovering/Resolving]
